FAERS Safety Report 7054541-1 (Version None)
Quarter: 2010Q4

REPORT INFORMATION
  Report Type: 
  Country: None (occurrence: None)
  Receive Date: 20101020
  Receipt Date: 20101011
  Transmission Date: 20110411
  Serious: Yes (Hospitalization, Other)
  Sender: FDA-Public Use
  Company Number: ES-ELI_LILLY_AND_COMPANY-ES201010002592

PATIENT
  Sex: Female

DRUGS (8)
  1. FORTEO [Suspect]
     Indication: OSTEOPOROSIS
     Dosage: 20 UG, DAILY (1/D)
     Route: 058
     Dates: start: 20090323, end: 20100901
  2. ARCOXIA [Concomitant]
     Indication: RHEUMATOID ARTHRITIS
     Dosage: 90 MG, DAILY (1/D)
     Route: 048
     Dates: end: 20100901
  3. ZAMENE [Concomitant]
     Indication: RHEUMATOID ARTHRITIS
     Dosage: 20 MG, DAILY (1/D)
     Route: 048
     Dates: end: 20100901
  4. CYMBALTA [Concomitant]
     Indication: AFFECTIVE DISORDER
     Dosage: 30 MG, DAILY (1/D)
     Route: 048
     Dates: end: 20100901
  5. TRIPTIZOL [Concomitant]
     Indication: RHEUMATOID ARTHRITIS
     Dosage: 75 MG, DAILY (1/D)
     Route: 048
     Dates: end: 20100901
  6. ACFOL [Concomitant]
     Indication: RHEUMATOID ARTHRITIS
     Dosage: UNK, WEEKLY (1/W)
     Route: 048
     Dates: end: 20100901
  7. DIAZEPAM [Concomitant]
     Dosage: 5 MG, DAILY (1/D)
     Route: 048
  8. OMEPRAZOLE [Concomitant]
     Indication: GASTRIC DISORDER
     Dosage: 20 MG, DAILY (1/D)
     Route: 048

REACTIONS (2)
  - CARDIAC ABLATION [None]
  - LYMPHOMA [None]
